FAERS Safety Report 8457685-2 (Version None)
Quarter: 2012Q2

REPORT INFORMATION
  Report Type: 
  Country: None (occurrence: None)
  Receive Date: 20120618
  Receipt Date: 20120618
  Transmission Date: 20120825
  Serious: No
  Sender: FDA-Public Use
  Company Number: None

PATIENT
  Sex: Male
  Weight: 70.3075 kg

DRUGS (8)
  1. FISH OIL [Concomitant]
  2. VITAMIN B-12 [Concomitant]
  3. VITAMIN D [Concomitant]
  4. UNSPECIFIED MULTI-VITAMINS [Concomitant]
  5. REBIF [Concomitant]
  6. SOLU-MEDROL [Suspect]
     Indication: MULTIPLE SCLEROSIS
     Dosage: 1000 MG ONCE MONTHLY IV
     Route: 042
  7. NAPROXEN (ALEVE) [Concomitant]
  8. ASCORBIC ACID [Concomitant]

REACTIONS (5)
  - FLUSHING [None]
  - ERYTHEMA [None]
  - PRURITUS [None]
  - FEELING HOT [None]
  - URTICARIA [None]
